FAERS Safety Report 7180497-7 (Version None)
Quarter: 2010Q4

REPORT INFORMATION
  Report Type: 
  Country: None (occurrence: None)
  Receive Date: 20101221
  Receipt Date: 20101214
  Transmission Date: 20110411
  Serious: Yes (Other)
  Sender: FDA-Public Use
  Company Number: GB-PFIZER INC-2010171205

PATIENT
  Age: 63 Year
  Sex: Male

DRUGS (3)
  1. DALACIN [Suspect]
     Indication: GINGIVAL INFECTION
     Dosage: 450 MG, 4X/DAY
  2. DALACIN [Suspect]
     Indication: LOCALISED INFECTION
     Dosage: 150 MG, 3X/DAY
  3. CIPROFLOX ^APM^ [Concomitant]
     Dosage: UNK

REACTIONS (3)
  - COUGH [None]
  - LOCALISED INFECTION [None]
  - MYOCARDIAL INFARCTION [None]
